FAERS Safety Report 7939781-9 (Version None)
Quarter: 2011Q4

REPORT INFORMATION
  Report Type: 
  Country: None (occurrence: None)
  Receive Date: 20111125
  Receipt Date: 20111122
  Transmission Date: 20120403
  Serious: Yes (Death, Hospitalization)
  Sender: FDA-Public Use
  Company Number: PHHY2011EC101858

PATIENT
  Sex: Female

DRUGS (4)
  1. ZOLEDRONOC ACID [Suspect]
     Dosage: 5MG/100ML 1 APPLICATION YEARLY
     Route: 042
     Dates: start: 20090101
  2. ANTIHYPERTENSIVE DRUGS [Concomitant]
     Indication: HYPERTENSION
  3. ZOLEDRONOC ACID [Suspect]
     Indication: OSTEOPOROSIS
     Dosage: 5MG/100ML 1 APPLICATION YEARLY
     Route: 042
     Dates: start: 20080101
  4. ZOLEDRONOC ACID [Suspect]
     Dosage: 5MG/100ML 1 APPLICATION YEARLY
     Route: 042
     Dates: start: 20100301

REACTIONS (3)
  - OESOPHAGEAL CARCINOMA [None]
  - ABDOMINAL PAIN UPPER [None]
  - NEOPLASM PROGRESSION [None]
